FAERS Safety Report 12119157 (Version 1)
Quarter: 2016Q1

REPORT INFORMATION
  Report Type: Spontaneous
  Country: US (occurrence: None)
  Receive Date: 20160225
  Receipt Date: 20160225
  Transmission Date: 20160526
  Serious: Yes (Hospitalization)
  Sender: FDA-Public Use
  Company Number: None

PATIENT
  Age: 58 Year
  Sex: Female
  Weight: 68.04 kg

DRUGS (1)
  1. IBANDRONATE [Suspect]
     Active Substance: IBANDRONATE SODIUM
     Indication: OSTEOPENIA
     Dosage: 1 PILL ONCE A MONTH  TAKEN BY MOUTH
     Route: 048
     Dates: start: 20080101, end: 20160201

REACTIONS (1)
  - Femur fracture [None]

NARRATIVE: CASE EVENT DATE: 20160213
